FAERS Safety Report 21521566 (Version 4)
Quarter: 2023Q1

REPORT INFORMATION
  Report Type: Spontaneous
  Country: US (occurrence: US)
  Receive Date: 20221028
  Receipt Date: 20230221
  Transmission Date: 20230418
  Serious: Yes (Hospitalization, Other)
  Sender: FDA-Public Use
  Company Number: US-SA-2022SA432985

PATIENT
  Age: 62 Year
  Sex: Male
  Weight: 94 kg

DRUGS (21)
  1. DOCETAXEL [Suspect]
     Active Substance: DOCETAXEL
     Indication: Neoplasm
     Dosage: UNK, 1X
     Dates: start: 20220803, end: 20220803
  2. DOCETAXEL [Suspect]
     Active Substance: DOCETAXEL
     Dosage: 55 MG/M2, Q3W
     Dates: start: 20220820, end: 20221203
  3. DOCETAXEL [Suspect]
     Active Substance: DOCETAXEL
     Dosage: 75 MG/M2, 1X
     Route: 042
     Dates: start: 20220921
  4. MIRZOTAMAB CLEZUTOCLAX [Suspect]
     Active Substance: MIRZOTAMAB CLEZUTOCLAX
     Indication: Neoplasm
     Dosage: UNK
     Route: 042
     Dates: start: 20220803, end: 20220803
  5. MIRZOTAMAB CLEZUTOCLAX [Suspect]
     Active Substance: MIRZOTAMAB CLEZUTOCLAX
     Dosage: 12 MG/KG, Q3W
     Route: 042
     Dates: start: 20221012
  6. MIRZOTAMAB CLEZUTOCLAX [Suspect]
     Active Substance: MIRZOTAMAB CLEZUTOCLAX
     Dosage: 16 MG/KG, Q3W
     Route: 042
     Dates: start: 20220803, end: 20220921
  7. ATORVASTATIN CALCIUM [Concomitant]
     Active Substance: ATORVASTATIN CALCIUM
     Indication: Blood cholesterol
     Dosage: 5 MG, QD
     Dates: start: 20210215
  8. ATORVASTATIN CALCIUM [Concomitant]
     Active Substance: ATORVASTATIN CALCIUM
     Dosage: 10 MG, QD
     Dates: start: 20210215
  9. METFORMIN HYDROCHLORIDE [Concomitant]
     Active Substance: METFORMIN HYDROCHLORIDE
     Indication: Type 2 diabetes mellitus
     Dosage: 500 MG, QD
     Dates: start: 20210702
  10. TAMSULOSIN HYDROCHLORIDE [Concomitant]
     Active Substance: TAMSULOSIN HYDROCHLORIDE
     Indication: Prostatomegaly
     Dosage: 0.4 MG, QD
     Dates: start: 20160211
  11. TOCOPHEROL;UBIDECARENONE [Concomitant]
     Indication: Cardiovascular event prophylaxis
     Dosage: 200 MG, QD
     Dates: start: 20211011
  12. ENTYVIO [Concomitant]
     Active Substance: VEDOLIZUMAB
     Indication: Colitis ulcerative
     Dosage: 200 MG, Q8W
     Dates: start: 20211028
  13. DEXAMETHASONE [Concomitant]
     Active Substance: DEXAMETHASONE
     Indication: Neoplasm malignant
     Dosage: 10 MG, PRN
     Dates: start: 20211222
  14. DEXAMETHASONE [Concomitant]
     Active Substance: DEXAMETHASONE
     Indication: Nausea
     Dosage: 4 MG, PRN
     Dates: start: 20220803
  15. ONDANSETRON [Concomitant]
     Active Substance: ONDANSETRON
     Indication: Nausea
     Dosage: 8 MG, PRN
     Dates: start: 20220805
  16. ONDANSETRON [Concomitant]
     Active Substance: ONDANSETRON
     Indication: Vomiting
  17. PROCHLORPERAZINE [Concomitant]
     Active Substance: PROCHLORPERAZINE
     Indication: Nausea
     Dosage: 10 MG, PRN
     Dates: start: 20220804
  18. PROCHLORPERAZINE [Concomitant]
     Active Substance: PROCHLORPERAZINE
     Indication: Vomiting
  19. BLACKMORES ALIVE! WOMEN^S MULTIVITAMIN [Concomitant]
     Indication: Prophylaxis
     Dosage: 1 DF, QD
     Dates: start: 20201201
  20. VITAMINS [Concomitant]
     Active Substance: VITAMINS
     Indication: Vitamin supplementation
     Dosage: 1 DF, QD
     Dates: start: 20201201
  21. LIDOCAINE\PRILOCAINE [Concomitant]
     Active Substance: LIDOCAINE\PRILOCAINE
     Indication: Catheter site pain
     Dosage: UNK UNK, PRN
     Dates: start: 20221005

REACTIONS (3)
  - Pyrexia [Not Recovered/Not Resolved]
  - Neutrophil count decreased [Recovered/Resolved]
  - Pneumonitis [Not Recovered/Not Resolved]

NARRATIVE: CASE EVENT DATE: 20220831
